FAERS Safety Report 6045420-7 (Version None)
Quarter: 2009Q1

REPORT INFORMATION
  Report Type: 
  Country: None (occurrence: None)
  Receive Date: 20090121
  Receipt Date: 20090119
  Transmission Date: 20090719
  Serious: Yes (Disabling, Other)
  Sender: FDA-Public Use
  Company Number: US-BAYER-200814105BCC

PATIENT
  Age: 53 Year
  Sex: Male
  Weight: 113 kg

DRUGS (6)
  1. ALEVE (CAPLET) [Suspect]
     Indication: ANALGESIA
     Dosage: TOTAL DAILY DOSE: 220 MG  UNIT DOSE: 220 MG
     Route: 048
     Dates: start: 20081016, end: 20081017
  2. ZOLOFT [Concomitant]
  3. GLYBURIDE [Concomitant]
  4. METFORMIN [Concomitant]
  5. MIRTAZAPINE [Concomitant]
  6. SEROQUEL [Concomitant]

REACTIONS (2)
  - DEPRESSION [None]
  - SOCIAL FEAR [None]
